FAERS Safety Report 10211026 (Version 1)
Quarter: 2014Q2

REPORT INFORMATION
  Report Type: Spontaneous
  Country: US (occurrence: None)
  Receive Date: 20140530
  Receipt Date: 20140530
  Transmission Date: 20141212
  Serious: Yes (Life-Threatening, Hospitalization, Disabling)
  Sender: FDA-Public Use
  Company Number: None

PATIENT
  Age: 49 Year
  Sex: Male
  Weight: 102.06 kg

DRUGS (1)
  1. CYCLOSPORINE [Suspect]
     Indication: PROPHYLAXIS AGAINST TRANSPLANT REJECTION
     Dosage: 3 CAPS TWICE DAILY.
     Route: 048

REACTIONS (4)
  - Product substitution issue [None]
  - Blood pressure increased [None]
  - Toxicity to various agents [None]
  - Glomerular filtration rate decreased [None]
